FAERS Safety Report 24696405 (Version 1)
Quarter: 2024Q4

REPORT INFORMATION
  Report Type: Spontaneous
  Country: US (occurrence: US)
  Receive Date: 20241204
  Receipt Date: 20241204
  Transmission Date: 20250115
  Serious: No
  Sender: ALEXION PHARMACEUTICALS
  Company Number: US-AstraZeneca-CH-00750301A

PATIENT

DRUGS (1)
  1. SOLIRIS [Suspect]
     Active Substance: ECULIZUMAB
     Indication: Thrombotic microangiopathy
     Dosage: UNK
     Route: 065

REACTIONS (5)
  - Blood lactate dehydrogenase increased [Unknown]
  - Haptoglobin increased [Unknown]
  - Blood creatinine increased [Unknown]
  - Off label use [Unknown]
  - Drug ineffective for unapproved indication [Unknown]
